FAERS Safety Report 25228505 (Version 1)
Quarter: 2025Q2

REPORT INFORMATION
  Report Type: Spontaneous
  Country: GB (occurrence: GB)
  Receive Date: 20250423
  Receipt Date: 20250423
  Transmission Date: 20250716
  Serious: Yes (Death, Other)
  Sender: Kenvue
  Company Number: None

PATIENT

DRUGS (2)
  1. CALPOL [Suspect]
     Active Substance: ACETAMINOPHEN
     Indication: Product used for unknown indication
     Route: 065
     Dates: start: 20221213
  2. IBUPROFEN [Suspect]
     Active Substance: IBUPROFEN
     Indication: Product used for unknown indication
     Route: 065
     Dates: start: 20221213

REACTIONS (5)
  - Off label use [Fatal]
  - Pneumonia [Fatal]
  - Sepsis [Fatal]
  - Beta haemolytic streptococcal infection [Fatal]
  - Viral infection [Fatal]

NARRATIVE: CASE EVENT DATE: 20221213
